FAERS Safety Report 23563220 (Version 4)
Quarter: 2024Q2

REPORT INFORMATION
  Report Type: Spontaneous
  Country: US (occurrence: US)
  Receive Date: 20240226
  Receipt Date: 20240430
  Transmission Date: 20240716
  Serious: Yes (Hospitalization, Other)
  Sender: FDA-Public Use
  Company Number: US-SA-SAC20240221000728

PATIENT
  Age: 67 Year
  Sex: Female

DRUGS (1)
  1. REZUROCK [Suspect]
     Active Substance: BELUMOSUDIL
     Indication: Graft versus host disease
     Dosage: 200 MG, QD
     Route: 048
     Dates: start: 202312

REACTIONS (8)
  - Cerebrovascular accident [Recovering/Resolving]
  - Flatulence [Unknown]
  - Dyspepsia [Unknown]
  - Abdominal discomfort [Unknown]
  - Erythema [Unknown]
  - Erythema [Unknown]
  - Diarrhoea [Unknown]
  - Cataract operation [Unknown]

NARRATIVE: CASE EVENT DATE: 20240314
